FAERS Safety Report 12565146 (Version 3)
Quarter: 2016Q3

REPORT INFORMATION
  Report Type: Spontaneous
  Country: US (occurrence: US)
  Receive Date: 20160718
  Receipt Date: 20160907
  Transmission Date: 20161109
  Serious: Yes (Other)
  Sender: FDA-Public Use
  Company Number: US-PFIZER INC-2016309662

PATIENT
  Age: 76 Year
  Sex: Female
  Weight: 77.98 kg

DRUGS (4)
  1. IBRANCE [Suspect]
     Active Substance: PALBOCICLIB
     Indication: BREAST CANCER
     Dosage: CYCLIC (ONCE DAILY FOR 21 DAYS ON/ 7 DAYS OFF)
     Route: 048
     Dates: start: 20160524, end: 20160613
  2. LETROZOLE. [Concomitant]
     Active Substance: LETROZOLE
     Indication: BREAST CANCER
     Dosage: 2.5 MG, 1X/DAY
     Route: 048
  3. IBRANCE [Suspect]
     Active Substance: PALBOCICLIB
     Dosage: CYCLIC (ONCE DAILY FOR 21 DAYS ON/ 7 DAYS OFF)
     Dates: start: 20160621, end: 20160711
  4. IBRANCE [Suspect]
     Active Substance: PALBOCICLIB
     Dosage: CYCLIC (ONCE DAILY FOR 21 DAYS ON/ 7 DAYS OFF)
     Dates: start: 20160719, end: 20160804

REACTIONS (10)
  - Fluid retention [Unknown]
  - White blood cell count decreased [Unknown]
  - Malaise [Recovering/Resolving]
  - Alopecia [Not Recovered/Not Resolved]
  - Weight fluctuation [Unknown]
  - Asthenia [Recovering/Resolving]
  - Fatigue [Unknown]
  - Thrombosis [Not Recovered/Not Resolved]
  - Dyspnoea [Recovering/Resolving]
  - Gait disturbance [Not Recovered/Not Resolved]

NARRATIVE: CASE EVENT DATE: 2016
